FAERS Safety Report 6598012-5 (Version None)
Quarter: 2010Q1

REPORT INFORMATION
  Report Type: 
  Country: None (occurrence: None)
  Receive Date: 20100223
  Receipt Date: 20100201
  Transmission Date: 20100710
  Serious: Yes (Other)
  Sender: FDA-Public Use
  Company Number: US-ALLERGAN-0917776US

PATIENT
  Age: 34 Year
  Sex: Female
  Weight: 56.689 kg

DRUGS (3)
  1. BOTOX [Suspect]
     Indication: MUSCLE SPASMS
     Dosage: 200 UNITS, SINGLE
     Route: 030
     Dates: start: 20090215, end: 20090215
  2. BOTOX [Suspect]
     Indication: BACK PAIN
  3. BOTOX [Suspect]
     Indication: MUSCLE TIGHTNESS

REACTIONS (6)
  - ASTHENIA [None]
  - HYPOAESTHESIA [None]
  - PANIC REACTION [None]
  - PARAESTHESIA [None]
  - RESPIRATORY DISORDER [None]
  - SOMNOLENCE [None]
